FAERS Safety Report 5014884-X (Version None)
Quarter: 2006Q2

REPORT INFORMATION
  Report Type: 
  Country: None (occurrence: None)
  Receive Date: 20060412
  Receipt Date: 20050825
  Transmission Date: 20061013
  Serious: Yes (Hospitalization)
  Sender: FDA-Public Use
  Company Number: 2005-BP-08589BP

PATIENT
  Age: 45 Year
  Sex: Female

DRUGS (1)
  1. MOBIC [Suspect]
     Dosage: NR (NR), NR

REACTIONS (1)
  - MYOCARDIAL INFARCTION [None]
